FAERS Safety Report 5837525-8 (Version None)
Quarter: 2008Q3

REPORT INFORMATION
  Report Type: 
  Country: None (occurrence: None)
  Receive Date: 20080807
  Receipt Date: 20080729
  Transmission Date: 20090109
  Serious: Yes (Hospitalization)
  Sender: FDA-Public Use
  Company Number: CA-PFIZER INC-2008060450

PATIENT
  Age: 60 Year
  Sex: Female

DRUGS (3)
  1. SU-011,248 [Suspect]
     Indication: BREAST CANCER METASTATIC
     Route: 048
     Dates: start: 20080417, end: 20080710
  2. AROMASIN [Suspect]
     Indication: BREAST CANCER METASTATIC
     Route: 048
  3. HYDROMORPHONE HCL [Concomitant]

REACTIONS (2)
  - FATIGUE [None]
  - GENERAL PHYSICAL HEALTH DETERIORATION [None]
